FAERS Safety Report 6129867-6 (Version None)
Quarter: 2009Q1

REPORT INFORMATION
  Report Type: 
  Country: None (occurrence: None)
  Receive Date: 20090324
  Receipt Date: 20090318
  Transmission Date: 20090719
  Serious: Yes (Death, Hospitalization)
  Sender: FDA-Public Use
  Company Number: DE-CELGENEUS-062-21880-08061579

PATIENT
  Sex: Female
  Weight: 62 kg

DRUGS (3)
  1. REVLIMID [Suspect]
     Indication: PLASMACYTOMA
     Route: 048
     Dates: start: 20080609, end: 20080620
  2. FORTECORTIN [Concomitant]
     Indication: PLASMACYTOMA
     Route: 065
     Dates: start: 20080609, end: 20080612
  3. FORTECORTIN [Concomitant]
     Route: 065
     Dates: start: 20080617, end: 20080620

REACTIONS (2)
  - BONE PAIN [None]
  - DEATH [None]
